FAERS Safety Report 23069065 (Version 1)
Quarter: 2023Q4

REPORT INFORMATION
  Report Type: Spontaneous
  Country: US (occurrence: US)
  Receive Date: 20231016
  Receipt Date: 20231016
  Transmission Date: 20240109
  Serious: Yes (Hospitalization, Other)
  Sender: FDA-Public Use
  Company Number: US-EPICPHARMA-US-2023EPCLIT01497

PATIENT
  Age: 36 Year
  Sex: Female

DRUGS (17)
  1. METHADONE HYDROCHLORIDE [Suspect]
     Active Substance: METHADONE HYDROCHLORIDE
     Indication: Product used for unknown indication
     Route: 065
  2. MORPHINE [Suspect]
     Active Substance: MORPHINE
     Indication: Pain
     Route: 048
  3. MORPHINE [Suspect]
     Active Substance: MORPHINE
     Route: 048
  4. MORPHINE [Suspect]
     Active Substance: MORPHINE
     Dosage: EVERY HOUR
     Route: 048
  5. MORPHINE [Suspect]
     Active Substance: MORPHINE
     Route: 048
  6. ACETAMINOPHEN\HYDROCODONE BITARTRATE [Suspect]
     Active Substance: ACETAMINOPHEN\HYDROCODONE BITARTRATE
     Indication: Pain
     Route: 065
  7. HYDROMORPHONE [Suspect]
     Active Substance: HYDROMORPHONE
     Indication: Pain
     Dosage: 2-4MG EVERY 4H
     Route: 048
  8. HYDROMORPHONE [Suspect]
     Active Substance: HYDROMORPHONE
     Route: 048
  9. HYDROMORPHONE [Suspect]
     Active Substance: HYDROMORPHONE
     Route: 048
  10. HYDROMORPHONE [Suspect]
     Active Substance: HYDROMORPHONE
     Route: 048
  11. HYDROMORPHONE [Suspect]
     Active Substance: HYDROMORPHONE
     Dosage: EVERY 15 MINUTE
     Route: 065
  12. TRETINOIN [Concomitant]
     Active Substance: TRETINOIN
     Indication: Chemotherapy
     Route: 065
  13. ARSENIC TRIOXIDE [Concomitant]
     Active Substance: ARSENIC TRIOXIDE
     Indication: Chemotherapy
     Route: 065
  14. PREDNISONE [Concomitant]
     Active Substance: PREDNISONE
     Indication: Chemotherapy
     Route: 065
  15. DEXAMETHASONE [Concomitant]
     Active Substance: DEXAMETHASONE
     Indication: Chemotherapy
     Route: 065
  16. BACLOFEN [Concomitant]
     Active Substance: BACLOFEN
     Indication: Product used for unknown indication
     Route: 065
  17. METHOCARBAMOL [Concomitant]
     Active Substance: METHOCARBAMOL
     Indication: Product used for unknown indication
     Route: 065

REACTIONS (2)
  - Hyperaesthesia [Recovered/Resolved]
  - Electrocardiogram QT prolonged [Unknown]
